FAERS Safety Report 9732266 (Version 2)
Quarter: 2014Q1

REPORT INFORMATION
  Report Type: Spontaneous
  Country: JP (occurrence: JP)
  Receive Date: 20131204
  Receipt Date: 20140103
  Transmission Date: 20141002
  Serious: Yes (Hospitalization)
  Sender: FDA-Public Use
  Company Number: JP-BAYER-2013-147555

PATIENT
  Age: 66 Year
  Sex: Male
  Weight: 59 kg

DRUGS (11)
  1. STIVARGA [Suspect]
     Indication: COLON CANCER
     Dosage: 160 MG, QD
     Route: 048
     Dates: start: 20130704, end: 20130725
  2. STIVARGA [Suspect]
     Indication: COLON CANCER
     Dosage: 160 MG, QD
     Route: 048
     Dates: start: 20130801, end: 20130822
  3. STIVARGA [Suspect]
     Indication: COLON CANCER
     Dosage: 160 MG, QD
     Route: 048
     Dates: start: 20130829, end: 20130919
  4. PROMAC [NITROFURANTOIN] [Concomitant]
     Dosage: DAILY DOSE 150 MG
     Route: 048
     Dates: start: 20120216
  5. AMITIZA [Concomitant]
     Dosage: DAILY DOSE 48 ?G
     Route: 048
     Dates: start: 20130912
  6. LYRICA [Concomitant]
     Dosage: DAILY DOSE 75 MG
     Route: 048
     Dates: start: 20130416
  7. SENNOSIDE [Concomitant]
     Dosage: DAILY DOSE 12 MG
     Route: 048
     Dates: start: 20111007
  8. VITAMEDIN [Concomitant]
     Dosage: DAILY DOSE 3 DF
     Route: 048
     Dates: start: 20130416
  9. MIYA BM [Concomitant]
     Dosage: DAILY DOSE 3 DF
     Route: 048
     Dates: start: 20111007
  10. LOXONIN [Concomitant]
     Dosage: DAILY DOSE 180 MG
     Route: 048
     Dates: start: 20130416
  11. PARIET [Concomitant]
     Dosage: DAILY DOSE 10 MG
     Route: 048
     Dates: start: 20111007

REACTIONS (1)
  - Lung infection [Recovered/Resolved]
